FAERS Safety Report 24303988 (Version 2)
Quarter: 2024Q4

REPORT INFORMATION
  Report Type: Spontaneous
  Country: RU (occurrence: RU)
  Receive Date: 20240910
  Receipt Date: 20241211
  Transmission Date: 20250114
  Serious: Yes (Death, Other)
  Sender: BRISTOL-MYERS SQUIBB COMPANY
  Company Number: RU-BRISTOL-MYERS SQUIBB COMPANY-2024-142611

PATIENT
  Age: 42 Year
  Sex: Female

DRUGS (2)
  1. NIVOLUMAB [Suspect]
     Active Substance: NIVOLUMAB
     Indication: Malignant melanoma
     Route: 041
     Dates: start: 20240820
  2. IPILIMUMAB [Suspect]
     Active Substance: IPILIMUMAB
     Indication: Malignant melanoma
     Route: 041
     Dates: start: 20240820

REACTIONS (1)
  - Brain oedema [Fatal]
